FAERS Safety Report 5563909-1 (Version None)
Quarter: 2007Q4

REPORT INFORMATION
  Report Type: 
  Country: None (occurrence: None)
  Receive Date: 20071217
  Receipt Date: 20071011
  Transmission Date: 20080405
  Serious: No
  Sender: FDA-Public Use
  Company Number: US-ASTRAZENECA-2007UW23656

PATIENT
  Age: 66 Year
  Sex: Female
  Weight: 72.6 kg

DRUGS (4)
  1. CRESTOR [Suspect]
     Indication: BLOOD CHOLESTEROL INCREASED
     Dosage: TWO DOSES OF 5 MG (SPLIT TABLETS)
     Route: 048
  2. SOMA [Concomitant]
  3. MAXZIDE [Concomitant]
  4. CARDIA XT [Concomitant]

REACTIONS (2)
  - EYE IRRITATION [None]
  - OCULAR HYPERAEMIA [None]
